FAERS Safety Report 8760263 (Version 1)
Quarter: 2012Q4

REPORT INFORMATION
  Report Type: 
  Country: US (occurrence: US)
  Receive Date: 20120830
  Receipt Date: 20120830
  Transmission Date: 20130627
  Serious: No
  Sender: FDA-Public Use
  Company Number: US-VERTEX PHARMACEUTICAL INC.-2012-019879

PATIENT

DRUGS (1)
  1. IVACAFTOR [Suspect]
     Indication: CYSTIC FIBROSIS
     Dosage: 150 UNK, UNK
     Route: 048
     Dates: start: 20120306

REACTIONS (2)
  - Malaise [Unknown]
  - Pulmonary function test increased [Unknown]
